FAERS Safety Report 24071197 (Version 1)
Quarter: 2024Q3

REPORT INFORMATION
  Report Type: Spontaneous
  Country: US (occurrence: None)
  Receive Date: 20240709
  Receipt Date: 20240709
  Transmission Date: 20241017
  Serious: Yes (Life-Threatening, Disabling, Other)
  Sender: Public
  Company Number: None

PATIENT
  Age: 72 Year
  Sex: Male
  Weight: 72 kg

DRUGS (13)
  1. POTASSIUM CHLORIDE [Suspect]
     Active Substance: POTASSIUM CHLORIDE
     Indication: Adverse event
     Dosage: OTHER QUANTITY : 90 CAPSULE(S);?FREQUENCY : DAILY;?
     Route: 048
     Dates: start: 20070630, end: 20240709
  2. POTASSIUM [Concomitant]
     Active Substance: POTASSIUM
  3. ESCITALOPRAM [Concomitant]
     Active Substance: ESCITALOPRAM OXALATE
  4. PANTOPRAZOLE SODIUM [Concomitant]
     Active Substance: PANTOPRAZOLE SODIUM
  5. CLONAZEPAM [Concomitant]
     Active Substance: CLONAZEPAM
  6. CARVEDILOL [Concomitant]
     Active Substance: CARVEDILOL
  7. RAMIPRIL [Concomitant]
     Active Substance: RAMIPRIL
  8. FUROSEMIDE [Concomitant]
     Active Substance: FUROSEMIDE
  9. VALACYCLOVIR [Concomitant]
     Active Substance: VALACYCLOVIR HYDROCHLORIDE
  10. IRON [Concomitant]
     Active Substance: IRON
  11. MELATONIN [Concomitant]
     Active Substance: MELATONIN
  12. ASPIRIN [Concomitant]
     Active Substance: ASPIRIN
  13. NEN^S +50 MULTI-VITAMIN [Concomitant]

REACTIONS (4)
  - Arrhythmia [None]
  - Cardiac disorder [None]
  - Loss of consciousness [None]
  - Fall [None]

NARRATIVE: CASE EVENT DATE: 20240707
